FAERS Safety Report 9252081 (Version 2)
Quarter: 2014Q1

REPORT INFORMATION
  Report Type: Spontaneous
  Country: GT (occurrence: GT)
  Receive Date: 20130424
  Receipt Date: 20140326
  Transmission Date: 20141002
  Serious: Yes (Other)
  Sender: FDA-Public Use
  Company Number: GT-BAYER-2013-050286

PATIENT
  Sex: Female

DRUGS (1)
  1. KOGENATE FS [Suspect]
     Indication: VON WILLEBRAND^S DISEASE
     Route: 042

REACTIONS (5)
  - Haemorrhage [None]
  - Arthralgia [None]
  - Musculoskeletal disorder [None]
  - Pain [None]
  - Off label use [None]
